FAERS Safety Report 24647200 (Version 1)
Quarter: 2024Q4

REPORT INFORMATION
  Report Type: Spontaneous
  Country: FR (occurrence: FR)
  Receive Date: 20241121
  Receipt Date: 20241121
  Transmission Date: 20250115
  Serious: Yes (Other)
  Sender: ALEXION PHARMACEUTICALS
  Company Number: None

PATIENT
  Age: 80 Year

DRUGS (4)
  1. IMFINZI [Suspect]
     Active Substance: DURVALUMAB
     Indication: Lung neoplasm malignant
     Dosage: 1 DOSAGE FORM, QMONTH
  2. IMFINZI [Suspect]
     Active Substance: DURVALUMAB
     Dosage: 1 DOSAGE FORM, QMONTH
  3. IMFINZI [Suspect]
     Active Substance: DURVALUMAB
     Dosage: 1 DOSAGE FORM, QMONTH
  4. IMFINZI [Suspect]
     Active Substance: DURVALUMAB
     Dosage: 1 DOSAGE FORM, QMONTH

REACTIONS (1)
  - Neuralgia [Not Recovered/Not Resolved]
